FAERS Safety Report 4616165-2 (Version None)
Quarter: 2005Q1

REPORT INFORMATION
  Report Type: 
  Country: None (occurrence: None)
  Receive Date: 20050321
  Receipt Date: 20030521
  Transmission Date: 20050727
  Serious: Yes (Hospitalization)
  Sender: FDA-Public Use
  Company Number: 6004

PATIENT
  Age: 80 Year
  Sex: Male

DRUGS (4)
  1. MORPHINE [Suspect]
     Indication: CANCER PAIN
     Dosage: 30 MG BID PO
     Route: 048
     Dates: start: 20030419, end: 20030422
  2. IBUPROFEN [Concomitant]
  3. LACTULOSE [Concomitant]
  4. CIPROFLOXACIN [Concomitant]

REACTIONS (3)
  - AGGRESSION [None]
  - CONFUSIONAL STATE [None]
  - PARANOIA [None]
